FAERS Safety Report 14225962 (Version 1)
Quarter: 2017Q4

REPORT INFORMATION
  Report Type: Spontaneous
  Country: US (occurrence: US)
  Receive Date: 20171127
  Receipt Date: 20171127
  Transmission Date: 20180321
  Serious: No
  Sender: FDA-Public Use
  Company Number: US-TEVA-814015USA

PATIENT
  Sex: Male

DRUGS (2)
  1. BENICAR [Concomitant]
     Active Substance: OLMESARTAN MEDOXOMIL
  2. BUPROPION. [Suspect]
     Active Substance: BUPROPION
     Indication: SMOKING CESSATION THERAPY
     Dosage: 150 MILLIGRAM DAILY;
     Route: 048
     Dates: start: 20171003, end: 20171004

REACTIONS (3)
  - Product use in unapproved indication [Unknown]
  - Dizziness [Recovered/Resolved]
  - Nausea [Recovered/Resolved]
